FAERS Safety Report 21053665 (Version 8)
Quarter: 2022Q4

REPORT INFORMATION
  Report Type: Report from Study
  Country: US (occurrence: US)
  Receive Date: 20220707
  Receipt Date: 20221212
  Transmission Date: 20230112
  Serious: No
  Sender: FDA-Public Use
  Company Number: US-NOVARTISTESTPH-NVSC2022US154154

PATIENT
  Age: 68 Year
  Sex: Male

DRUGS (2)
  1. ENTRESTO [Suspect]
     Active Substance: SACUBITRIL\VALSARTAN
     Indication: Cardiac failure
     Dosage: 1 DOSAGE FORM, BID (49/51 MG)
     Route: 048
     Dates: start: 20220626
  2. POTASSIUM [Concomitant]
     Active Substance: POTASSIUM
     Indication: Product used for unknown indication
     Dosage: UNK (PILLS)
     Route: 065

REACTIONS (17)
  - Wound haemorrhage [Recovering/Resolving]
  - Tinnitus [Unknown]
  - Dyspnoea [Recovering/Resolving]
  - Stress [Unknown]
  - Large intestine benign neoplasm [Recovered/Resolved]
  - Somnolence [Unknown]
  - Depressed mood [Recovering/Resolving]
  - Feeling abnormal [Unknown]
  - Skin laceration [Recovering/Resolving]
  - Fall [Recovering/Resolving]
  - Fatigue [Unknown]
  - Nasopharyngitis [Unknown]
  - Micturition urgency [Unknown]
  - Dizziness postural [Not Recovered/Not Resolved]
  - Blood pressure decreased [Recovering/Resolving]
  - Cough [Unknown]
  - Product dose omission issue [Unknown]

NARRATIVE: CASE EVENT DATE: 20220627
